FAERS Safety Report 17727582 (Version 3)
Quarter: 2020Q2

REPORT INFORMATION
  Report Type: Spontaneous
  Country: JP (occurrence: JP)
  Receive Date: 20200430
  Receipt Date: 20200513
  Transmission Date: 20200714
  Serious: Yes (Hospitalization, Other)
  Sender: FDA-Public Use
  Company Number: JP-LUPIN PHARMACEUTICALS INC.-2020-01890

PATIENT
  Age: 7 Year
  Sex: Male
  Weight: 22 kg

DRUGS (14)
  1. LEVETIRACETAM TABLETS [Suspect]
     Active Substance: LEVETIRACETAM
     Dosage: 750 MILLIGRAM, QD
     Route: 048
  2. VALPROIC ACID. [Concomitant]
     Active Substance: VALPROIC ACID
     Dosage: 600 MILLIGRAM, QD
     Route: 065
  3. LEVETIRACETAM TABLETS [Suspect]
     Active Substance: LEVETIRACETAM
     Indication: EPILEPSY
     Dosage: 250 MILLIGRAM, QD
     Route: 048
  4. LEVETIRACETAM TABLETS [Suspect]
     Active Substance: LEVETIRACETAM
     Dosage: 500 MILLIGRAM, QD
     Route: 048
  5. VALPROIC ACID. [Concomitant]
     Active Substance: VALPROIC ACID
     Indication: EPILEPSY
     Dosage: UNK
     Route: 065
  6. LAMOTRIGINE. [Concomitant]
     Active Substance: LAMOTRIGINE
     Dosage: UNK (INCREASE)
     Route: 065
  7. LAMOTRIGINE. [Concomitant]
     Active Substance: LAMOTRIGINE
     Dosage: 32 MILLIGRAM, QD
     Route: 065
  8. LEVETIRACETAM TABLETS [Suspect]
     Active Substance: LEVETIRACETAM
     Dosage: 66 MILLIGRAM/KILOGRAM, QD
     Route: 048
  9. LEVETIRACETAM TABLETS [Suspect]
     Active Substance: LEVETIRACETAM
     Dosage: 1000 MILLIGRAM, QD
     Route: 048
  10. LAMOTRIGINE. [Concomitant]
     Active Substance: LAMOTRIGINE
     Indication: EPILEPSY
     Dosage: UNK
     Route: 065
  11. LEVETIRACETAM TABLETS [Suspect]
     Active Substance: LEVETIRACETAM
     Dosage: 1250 MILLIGRAM, QD
     Route: 048
  12. LEVETIRACETAM TABLETS [Suspect]
     Active Substance: LEVETIRACETAM
     Dosage: 500 MILLIGRAM, QD
     Route: 048
  13. LEVETIRACETAM TABLETS [Suspect]
     Active Substance: LEVETIRACETAM
     Dosage: 1000 MILLIGRAM, QD
     Route: 048
  14. LEVETIRACETAM TABLETS [Suspect]
     Active Substance: LEVETIRACETAM
     Dosage: 1500 MILLIGRAM, QD
     Route: 048

REACTIONS (1)
  - Epilepsy [Recovered/Resolved]
